FAERS Safety Report 10065334 (Version 1)
Quarter: 2014Q1

REPORT INFORMATION
  Report Type: Spontaneous
  Country: US (occurrence: None)
  Receive Date: 20140328
  Receipt Date: 20140328
  Transmission Date: 20141002
  Serious: No
  Sender: FDA-Public Use
  Company Number: 1000052311

PATIENT
  Sex: Female

DRUGS (5)
  1. LINZESS [Suspect]
     Indication: IRRITABLE BOWEL SYNDROME
     Dosage: 145 MCG ( 145 MCG, 1 IN 1 D) ORAL
     Route: 048
     Dates: start: 20131213
  2. CALCIUM ( CALCIUM) (CALCIUM) [Concomitant]
  3. ESTRADIOL ( ESTRADIOL) (ESTRADIOL) [Concomitant]
  4. RANITIDINE ( RANITIDINE) [Concomitant]
  5. MVI ( VITAMINS NOS) (VITAMINS NOS) [Concomitant]

REACTIONS (1)
  - Faeces discoloured [None]
